FAERS Safety Report 15593113 (Version 1)
Quarter: 2018Q4

REPORT INFORMATION
  Report Type: Spontaneous
  Country: CA (occurrence: CA)
  Receive Date: 20181107
  Receipt Date: 20181107
  Transmission Date: 20190205
  Serious: Yes (Disabling)
  Sender: FDA-Public Use
  Company Number: CA-FERRINGPH-2018FE06335

PATIENT

DRUGS (1)
  1. FIRMAGON [Suspect]
     Active Substance: DEGARELIX ACETATE
     Indication: PROSTATE CANCER
     Dosage: 80 MG, MONTHLY
     Route: 030
     Dates: start: 20181029

REACTIONS (7)
  - Movement disorder [Recovered/Resolved]
  - Testicular pain [Recovering/Resolving]
  - Vomiting [Recovered/Resolved]
  - Abdominal pain lower [Recovering/Resolving]
  - Product administered at inappropriate site [Recovering/Resolving]
  - Prostatic specific antigen increased [Unknown]
  - Incorrect route of product administration [Recovering/Resolving]

NARRATIVE: CASE EVENT DATE: 20181029
